FAERS Safety Report 8575464-2 (Version None)
Quarter: 2012Q3

REPORT INFORMATION
  Report Type: 
  Country: None (occurrence: None)
  Receive Date: 20120807
  Receipt Date: 20120730
  Transmission Date: 20120928
  Serious: Yes (Other)
  Sender: FDA-Public Use
  Company Number: PHHY2012JP067620

PATIENT

DRUGS (1)
  1. LAMISIL [Suspect]
     Dosage: UNK UKN, UNK
     Route: 048

REACTIONS (1)
  - HAEMATURIA [None]
